FAERS Safety Report 21145427 (Version 1)
Quarter: 2022Q3

REPORT INFORMATION
  Report Type: Other
  Country: CO (occurrence: CO)
  Receive Date: 20220729
  Receipt Date: 20220729
  Transmission Date: 20221027
  Serious: No
  Sender: FDA-Public Use
  Company Number: CO-TOLMAR, INC.-22CO035718

PATIENT
  Age: 84 Year
  Sex: Male

DRUGS (2)
  1. ELIGARD [Suspect]
     Active Substance: LEUPROLIDE ACETATE
     Indication: Product used for unknown indication
     Dosage: UNK
  2. ENZALUTAMIDE [Suspect]
     Active Substance: ENZALUTAMIDE
     Indication: Hormone-refractory prostate cancer
     Dosage: 160 MILLIGRAM, QD
     Route: 048
     Dates: start: 20220206

REACTIONS (2)
  - Hot flush [Recovered/Resolved]
  - Fatigue [Recovered/Resolved]
